FAERS Safety Report 14004718 (Version 1)
Quarter: 2017Q3

REPORT INFORMATION
  Report Type: Spontaneous
  Country: US (occurrence: US)
  Receive Date: 20170922
  Receipt Date: 20170922
  Transmission Date: 20171128
  Serious: No
  Sender: FDA-Public Use
  Company Number: US-ACCORD-050697

PATIENT
  Age: 59 Year
  Sex: Male
  Weight: 99.79 kg

DRUGS (1)
  1. ACCORD LISINOPRIL [Suspect]
     Active Substance: LISINOPRIL
     Indication: HYPERTENSION
     Dosage: STRENGTH: 20 MG PO DAILY
     Route: 048
     Dates: start: 20170329, end: 20170411

REACTIONS (2)
  - Product substitution issue [Unknown]
  - Paradoxical drug reaction [Unknown]
